FAERS Safety Report 14672028 (Version 1)
Quarter: 2018Q1

REPORT INFORMATION
  Report Type: Spontaneous
  Country: FR (occurrence: FR)
  Receive Date: 20180323
  Receipt Date: 20180323
  Transmission Date: 20180509
  Serious: Yes (Other)
  Sender: FDA-Public Use
  Company Number: FR-MERCK KGAA-2044378

PATIENT
  Sex: Female

DRUGS (1)
  1. NOVOTHYROX [Suspect]
     Active Substance: LEVOTHYROXINE SODIUM
     Indication: POST PROCEDURAL HYPOTHYROIDISM

REACTIONS (20)
  - Depression [None]
  - Nervousness [None]
  - Apathy [None]
  - Fatigue [None]
  - Pruritus [None]
  - Weight increased [None]
  - Pain [None]
  - Insomnia [None]
  - Headache [None]
  - Feeling abnormal [None]
  - Tension [None]
  - Irritability [None]
  - Amnesia [None]
  - Asthenia [None]
  - Loss of libido [None]
  - Blood thyroid stimulating hormone decreased [None]
  - Palpitations [None]
  - Emotional disorder [None]
  - Gamma-glutamyltransferase increased [None]
  - Abdominal pain [None]
